FAERS Safety Report 9181449 (Version 1)
Quarter: 2013Q1

REPORT INFORMATION
  Report Type: Other
  Country: JP (occurrence: JP)
  Receive Date: 20130322
  Receipt Date: 20130322
  Transmission Date: 20140127
  Serious: Yes (Life-Threatening)
  Sender: FDA-Public Use
  Company Number: JP-BRISTOL-MYERS SQUIBB COMPANY-17468653

PATIENT
  Age: 63 Year
  Sex: Male

DRUGS (2)
  1. BRIPLATIN [Suspect]
     Indication: SMALL CELL LUNG CANCER LIMITED STAGE
  2. ETOPOSIDE [Concomitant]
     Indication: SMALL CELL LUNG CANCER LIMITED STAGE

REACTIONS (1)
  - Nephropathy [Recovered/Resolved]
